FAERS Safety Report 19478708 (Version 1)
Quarter: 2021Q2

REPORT INFORMATION
  Report Type: Spontaneous
  Country: US (occurrence: US)
  Receive Date: 20210630
  Receipt Date: 20210630
  Transmission Date: 20210717
  Serious: Yes (Congenital Anomaly, Other)
  Sender: FDA-Public Use
  Company Number: US-VERTEX PHARMACEUTICALS-2021-009847

PATIENT

DRUGS (1)
  1. TRIKAFTA [Suspect]
     Active Substance: ELEXACAFTOR\IVACAFTOR\TEZACAFTOR
     Indication: CYSTIC FIBROSIS
     Dosage: 2 ORANGE TABS 100 MG ELEXA/ 50 MG TEZA/ 75 MG IVA AM; 1 BLUE TAB 150MG IVA PM
     Route: 048
     Dates: start: 2019

REACTIONS (2)
  - Deafness unilateral [Not Recovered/Not Resolved]
  - Ear malformation [Unknown]
